FAERS Safety Report 18665129 (Version 6)
Quarter: 2022Q3

REPORT INFORMATION
  Report Type: Spontaneous
  Country: GB (occurrence: GB)
  Receive Date: 20201225
  Receipt Date: 20220915
  Transmission Date: 20221027
  Serious: Yes (Other)
  Sender: FDA-Public Use
  Company Number: GB-BIOVITRUM-2020GB7883

PATIENT
  Age: 58 Year
  Sex: Female

DRUGS (14)
  1. ORFADIN [Suspect]
     Active Substance: NITISINONE
     Indication: Alkaptonuria
     Dosage: 2 MG
     Dates: start: 2012
  2. DICLOFENAC [Concomitant]
     Active Substance: DICLOFENAC
     Dates: start: 2013
  3. DICLOFENAC [Concomitant]
     Active Substance: DICLOFENAC
     Dates: start: 2014
  4. DICLOFENAC [Concomitant]
     Active Substance: DICLOFENAC
     Dates: start: 2017
  5. CO-DYDRAMOL [Concomitant]
     Active Substance: ACETAMINOPHEN\DIHYDROCODEINE
     Dates: start: 2013
  6. ACETAMINOPHEN [Concomitant]
     Active Substance: ACETAMINOPHEN
     Dates: start: 2013
  7. LIRIAL [Concomitant]
     Dosage: 2.5 MG
     Dates: start: 2013
  8. ALENDRONIC ACID [Concomitant]
     Active Substance: ALENDRONIC ACID
     Dosage: 70 MG
     Dates: start: 2016
  9. ALENDRONIC ACID [Concomitant]
     Active Substance: ALENDRONIC ACID
     Dates: start: 2017
  10. ALENDRONIC ACID [Concomitant]
     Active Substance: ALENDRONIC ACID
     Dates: start: 2018
  11. ALENDRONIC ACID [Concomitant]
     Active Substance: ALENDRONIC ACID
     Dates: start: 2020
  12. HUX D3 [Concomitant]
     Dates: start: 2018
  13. HUX D3 [Concomitant]
     Dates: start: 2019
  14. OXIDIL [MINOXIDIL] [Concomitant]
     Dosage: 3 20,000IU
     Dates: start: 2020

REACTIONS (3)
  - Lenticular opacities [Not Recovered/Not Resolved]
  - Cataract [Not Recovered/Not Resolved]
  - Amino acid level increased [Not Recovered/Not Resolved]
